FAERS Safety Report 21109102 (Version 3)
Quarter: 2022Q3

REPORT INFORMATION
  Report Type: Spontaneous
  Country: US (occurrence: None)
  Receive Date: 20220721
  Receipt Date: 20220819
  Transmission Date: 20221027
  Serious: No
  Sender: FDA-Public Use
  Company Number: 2022A236969

PATIENT
  Age: 32240 Day
  Sex: Female
  Weight: 62.1 kg

DRUGS (1)
  1. SYMBICORT [Suspect]
     Active Substance: BUDESONIDE\FORMOTEROL FUMARATE DIHYDRATE
     Indication: Respiration abnormal
     Dosage: 160/4.5MCG 2 PUFFS TWICE DAILY
     Route: 055
     Dates: start: 20220505

REACTIONS (11)
  - Dyspnoea [Unknown]
  - Bronchitis [Unknown]
  - Arthralgia [Not Recovered/Not Resolved]
  - Osteoporosis [Unknown]
  - Dysuria [Unknown]
  - Dry mouth [Unknown]
  - Tongue discomfort [Not Recovered/Not Resolved]
  - Oropharyngeal pain [Not Recovered/Not Resolved]
  - Product dose omission issue [Unknown]
  - Product use issue [Not Recovered/Not Resolved]
  - Device malfunction [Unknown]

NARRATIVE: CASE EVENT DATE: 20220505
